FAERS Safety Report 10756575 (Version 3)
Quarter: 2015Q1

REPORT INFORMATION
  Report Type: Report from Study
  Country: DE (occurrence: DE)
  Receive Date: 20150202
  Receipt Date: 20150218
  Transmission Date: 20150721
  Serious: Yes (Other)
  Sender: FDA-Public Use
  Company Number: PHHO2015DE001608

PATIENT
  Age: 64 Year
  Sex: Male
  Weight: 93 kg

DRUGS (2)
  1. AIN457 [Suspect]
     Active Substance: SECUKINUMAB
     Indication: PSORIASIS
     Dosage: 300 MG, FI
     Route: 058
     Dates: start: 20121025, end: 20140912
  2. AIN457 [Suspect]
     Active Substance: SECUKINUMAB
     Dosage: 300 MG, FI
     Route: 058
     Dates: start: 20141020

REACTIONS (1)
  - Basal cell carcinoma [Recovered/Resolved]

NARRATIVE: CASE EVENT DATE: 20150115
